FAERS Safety Report 8602546-9 (Version None)
Quarter: 2012Q3

REPORT INFORMATION
  Report Type: 
  Country: None (occurrence: None)
  Receive Date: 20120817
  Receipt Date: 20120810
  Transmission Date: 20120928
  Serious: Yes (Other)
  Sender: FDA-Public Use
  Company Number: PHEH2012US015918

PATIENT
  Sex: Female

DRUGS (9)
  1. ZOMETA [Suspect]
     Indication: BREAST CANCER
  2. ABRAXANE [Concomitant]
     Dosage: 120 MG, UNK
  3. AVASTIN [Concomitant]
     Indication: BREAST CANCER
     Dosage: 680 MG, UNK
  4. AMOXICILLIN [Concomitant]
  5. PENICILLIN ^GRUNENTHAL^ [Concomitant]
  6. AUGMENTIN '125' [Concomitant]
  7. PREDNISONE TAB [Concomitant]
     Indication: DYSPNOEA
  8. ZOMETA [Suspect]
     Indication: METASTASES TO BONE
     Dosage: 4 MG, UNK
     Dates: start: 20080801
  9. LORTAB [Concomitant]
     Indication: BONE PAIN

REACTIONS (19)
  - IMMUNE SYSTEM DISORDER [None]
  - PAIN IN JAW [None]
  - OSTEONECROSIS OF JAW [None]
  - DYSPNOEA [None]
  - TOOTH FRACTURE [None]
  - ORAL CAVITY FISTULA [None]
  - OSTEOLYSIS [None]
  - BONE LOSS [None]
  - BONE DISORDER [None]
  - LIGAMENT DISORDER [None]
  - INFECTION [None]
  - BACK PAIN [None]
  - IMPAIRED HEALING [None]
  - LOOSE TOOTH [None]
  - HEPATIC CYST [None]
  - INJURY [None]
  - EXPOSED BONE IN JAW [None]
  - MUSCULOSKELETAL CHEST PAIN [None]
  - GINGIVITIS [None]
